FAERS Safety Report 9283006 (Version 1)
Quarter: 2013Q2

REPORT INFORMATION
  Report Type: Spontaneous
  Country: US (occurrence: US)
  Receive Date: 20130510
  Receipt Date: 20130510
  Transmission Date: 20140414
  Serious: No
  Sender: FDA-Public Use
  Company Number: US-GLAXOSMITHKLINE-A0972450A

PATIENT
  Age: 68 Year
  Sex: Female

DRUGS (7)
  1. TYKERB [Suspect]
     Indication: BREAST CANCER
     Dosage: 4TAB PER DAY
     Route: 048
     Dates: start: 20120401
  2. HERCEPTIN [Concomitant]
  3. PERCOCET [Concomitant]
  4. VERAPAMIL [Concomitant]
  5. CENTRUM [Concomitant]
  6. ASPIRIN [Concomitant]
  7. VITAMIN D [Concomitant]

REACTIONS (1)
  - Diarrhoea [Not Recovered/Not Resolved]
